FAERS Safety Report 14806429 (Version 1)
Quarter: 2018Q2

REPORT INFORMATION
  Report Type: Spontaneous
  Country: BR (occurrence: BR)
  Receive Date: 20180425
  Receipt Date: 20180425
  Transmission Date: 20180711
  Serious: Yes (Life-Threatening)
  Sender: FDA-Public Use
  Company Number: BR-SA-2017SA221659

PATIENT
  Age: 25 Year
  Sex: Female
  Weight: 65 kg

DRUGS (2)
  1. AAS [Suspect]
     Active Substance: ASPIRIN
     Indication: PERIPHERAL VASCULAR DISORDER
     Route: 048
     Dates: start: 201704
  2. CLEXANE [Suspect]
     Active Substance: ENOXAPARIN SODIUM
     Indication: ANTIPHOSPHOLIPID SYNDROME
     Route: 058
     Dates: start: 20171024

REACTIONS (8)
  - Exposure during pregnancy [Unknown]
  - HELLP syndrome [Unknown]
  - Myocardial infarction [Unknown]
  - Hypertension [Recovering/Resolving]
  - Headache [Unknown]
  - Eclampsia [Unknown]
  - Hallucination [Unknown]
  - Abortion [Unknown]

NARRATIVE: CASE EVENT DATE: 20171221
